FAERS Safety Report 4834427-0 (Version None)
Quarter: 2005Q4

REPORT INFORMATION
  Report Type: 
  Country: None (occurrence: None)
  Receive Date: 20051114
  Receipt Date: 20051031
  Transmission Date: 20060501
  Serious: Yes (Other)
  Sender: FDA-Public Use
  Company Number: 2005142963

PATIENT
  Age: 95 Year
  Sex: Female
  Weight: 68.0396 kg

DRUGS (6)
  1. DETROL LA [Suspect]
     Indication: BLADDER DISORDER
     Dosage: 4 MG (4 MG, 1 IN 1 D), ORAL
     Route: 048
  2. DETROL LA [Suspect]
     Indication: HYPERTONIC BLADDER
     Dosage: 4 MG (4 MG, 1 IN 1 D), ORAL
     Route: 048
  3. DITROPAN [Suspect]
     Indication: HYPERTONIC BLADDER
     Dosage: 10 MG
  4. LISINOPRIL (LISINOOPRIL) [Concomitant]
  5. HYDROCHLOROTHIAZIDE [Concomitant]
  6. TYLENOL [Concomitant]

REACTIONS (10)
  - ABDOMINAL PAIN UPPER [None]
  - BODY HEIGHT DECREASED [None]
  - CONSTIPATION [None]
  - DRUG INEFFECTIVE [None]
  - DRY MOUTH [None]
  - MEMORY IMPAIRMENT [None]
  - PAIN [None]
  - SKIN CANCER [None]
  - VISUAL ACUITY REDUCED [None]
  - WEIGHT DECREASED [None]
